FAERS Safety Report 19570565 (Version 4)
Quarter: 2023Q2

REPORT INFORMATION
  Report Type: Spontaneous
  Country: US (occurrence: US)
  Receive Date: 20210716
  Receipt Date: 20230627
  Transmission Date: 20230721
  Serious: No
  Sender: FDA-Public Use
  Company Number: US-PFIZER INC-2021336765

PATIENT
  Age: 62 Year
  Sex: Female
  Weight: 100.24 kg

DRUGS (1)
  1. ARTHROTEC [Suspect]
     Active Substance: DICLOFENAC SODIUM\MISOPROSTOL
     Indication: Arthritis
     Dosage: 75 MG, 2X/DAY (75MG IN MORNING AND 75MG AT NIGHT)
     Route: 048

REACTIONS (1)
  - Attention deficit hyperactivity disorder [Unknown]
